FAERS Safety Report 5356808-1 (Version None)
Quarter: 2007Q2

REPORT INFORMATION
  Report Type: 
  Country: None (occurrence: None)
  Receive Date: 20070614
  Receipt Date: 20070605
  Transmission Date: 20071010
  Serious: Yes (Other)
  Sender: FDA-Public Use
  Company Number: ID-ROCHE-500928

PATIENT
  Age: 55 Year
  Sex: Female

DRUGS (2)
  1. BONIVA [Suspect]
     Indication: OSTEOPOROSIS POSTMENOPAUSAL
     Route: 048
     Dates: start: 20070508
  2. MOVICOX [Concomitant]
     Indication: PAIN
     Route: 048
     Dates: start: 20070516, end: 20070604

REACTIONS (3)
  - DIARRHOEA [None]
  - DYSPEPSIA [None]
  - FLATULENCE [None]
